FAERS Safety Report 6119405-6 (Version None)
Quarter: 2009Q1

REPORT INFORMATION
  Report Type: 
  Country: None (occurrence: None)
  Receive Date: 20090316
  Receipt Date: 20090306
  Transmission Date: 20090719
  Serious: Yes (Hospitalization)
  Sender: FDA-Public Use
  Company Number: A0772827A

PATIENT
  Age: 63 Year
  Sex: Male
  Weight: 107.3 kg

DRUGS (4)
  1. AVANDIA [Suspect]
     Indication: DIABETES MELLITUS
     Dosage: 8MG PER DAY
     Route: 048
     Dates: start: 20041221, end: 20070510
  2. AMARYL [Concomitant]
  3. ZOCOR [Concomitant]
  4. LOPRESSOR [Concomitant]

REACTIONS (1)
  - MYOCARDIAL INFARCTION [None]
